FAERS Safety Report 8156679-4 (Version None)
Quarter: 2012Q1

REPORT INFORMATION
  Report Type: 
  Country: None (occurrence: None)
  Receive Date: 20120222
  Receipt Date: 20120213
  Transmission Date: 20120608
  Serious: Yes (Death, Hospitalization, Other)
  Sender: FDA-Public Use
  Company Number: DK-BAXTER-2012BH004331

PATIENT
  Age: 64 Year
  Sex: Male

DRUGS (12)
  1. MABTHERA [Suspect]
     Route: 042
     Dates: start: 20090628, end: 20091117
  2. MABTHERA [Suspect]
     Indication: CHRONIC LYMPHOCYTIC LEUKAEMIA REFRACTORY
     Dosage: EVERY 2 WEEKS, THEN MAINTAINANCE EVERY 2 MONTHS
     Route: 042
     Dates: start: 20100714, end: 20110719
  3. MABTHERA [Suspect]
     Indication: HAEMOLYSIS
     Dosage: EVERY 2 WEEKS, THEN MAINTAINANCE EVERY 2 MONTHS
     Route: 042
     Dates: start: 20100714, end: 20110719
  4. MABTHERA [Suspect]
     Route: 042
     Dates: start: 20070220, end: 20070314
  5. CHLORAMBUCIL [Concomitant]
     Indication: CHRONIC LYMPHOCYTIC LEUKAEMIA
     Route: 048
     Dates: start: 20021104, end: 20040906
  6. PREDNISOLONE [Concomitant]
     Indication: HAEMOLYSIS
     Route: 048
     Dates: start: 20030416, end: 20030910
  7. MABTHERA [Suspect]
     Route: 042
     Dates: start: 20070220, end: 20070314
  8. CHLORAMBUCIL [Concomitant]
     Indication: PRODUCT USED FOR UNKNOWN INDICATION
     Route: 065
     Dates: start: 20090602, end: 20110816
  9. MABTHERA [Suspect]
     Route: 042
     Dates: start: 20090628, end: 20091117
  10. FLUDARABINE PHOSPHATE [Suspect]
     Indication: CHRONIC LYMPHOCYTIC LEUKAEMIA
     Route: 065
  11. CYCLOPHOSPHAMIDE [Suspect]
     Indication: HAEMOLYSIS
     Route: 065
  12. CYCLOPHOSPHAMIDE [Suspect]
     Indication: CHRONIC LYMPHOCYTIC LEUKAEMIA
     Route: 048
     Dates: start: 20070220, end: 20070529

REACTIONS (1)
  - PROGRESSIVE MULTIFOCAL LEUKOENCEPHALOPATHY [None]
